FAERS Safety Report 9522808 (Version 1)
Quarter: 2013Q3

REPORT INFORMATION
  Report Type: Report from Study
  Country: US (occurrence: US)
  Receive Date: 20130913
  Receipt Date: 20130913
  Transmission Date: 20140515
  Serious: Yes (Hospitalization)
  Sender: FDA-Public Use
  Company Number: US-ROCHE-1270287

PATIENT
  Age: 85 Year
  Sex: Female
  Weight: 63.56 kg

DRUGS (9)
  1. LUCENTIS [Suspect]
     Indication: AGE-RELATED MACULAR DEGENERATION
     Dosage: 0.05 (DOSE UNITS NOT PROVIDED) - RIGHT EYE
     Route: 031
  2. NITROGLYCERIN [Concomitant]
  3. LORAZEPAM [Concomitant]
     Indication: MENIERE^S DISEASE
  4. FUROSEMIDE [Concomitant]
     Dosage: WATER PILL
     Route: 048
  5. SYNTHROID [Concomitant]
     Route: 048
  6. SINGULAIR [Concomitant]
     Indication: ASTHMA
     Route: 048
  7. BABY ASPIRIN [Concomitant]
     Route: 065
  8. DICYCLOMINE [Concomitant]
     Route: 065
  9. NASONEX [Concomitant]
     Route: 065

REACTIONS (7)
  - Coronary arterial stent insertion [Recovered/Resolved]
  - Myocardial infarction [Recovered/Resolved]
  - Gastrointestinal disorder [Recovered/Resolved]
  - Haemorrhage [Unknown]
  - Glaucoma [Not Recovered/Not Resolved]
  - Fatigue [Unknown]
  - Cataract [Not Recovered/Not Resolved]
